FAERS Safety Report 20244810 (Version 3)
Quarter: 2022Q1

REPORT INFORMATION
  Report Type: Spontaneous
  Country: JP (occurrence: JP)
  Receive Date: 20211229
  Receipt Date: 20220201
  Transmission Date: 20220424
  Serious: Yes (Death, Other)
  Sender: FDA-Public Use
  Company Number: JP-CHUGAI-2021033028

PATIENT
  Age: 83 Year
  Sex: Female

DRUGS (2)
  1. ACTEMRA [Suspect]
     Active Substance: TOCILIZUMAB
     Indication: Still^s disease
     Route: 041
     Dates: start: 20211020, end: 20211020
  2. REMICADE [Suspect]
     Active Substance: INFLIXIMAB
     Indication: Still^s disease
     Route: 065
     Dates: start: 202111, end: 202112

REACTIONS (3)
  - Disseminated intravascular coagulation [Fatal]
  - Vascular device infection [Unknown]
  - Sepsis [Fatal]

NARRATIVE: CASE EVENT DATE: 20211201
